FAERS Safety Report 11052087 (Version 1)
Quarter: 2015Q2

REPORT INFORMATION
  Report Type: Report from Study
  Country: US (occurrence: US)
  Receive Date: 20150421
  Receipt Date: 20150421
  Transmission Date: 20150821
  Serious: Yes (Hospitalization, Other)
  Sender: FDA-Public Use
  Company Number: US-TEVA-524165USA

PATIENT
  Age: 69 Year
  Sex: Female

DRUGS (4)
  1. BENDAMUSTINE [Suspect]
     Active Substance: BENDAMUSTINE
     Indication: CHRONIC LYMPHOCYTIC LEUKAEMIA
     Dosage: DAYS 1 AND 2
     Route: 042
     Dates: start: 20101229, end: 20110609
  2. FLUDROCORTISONE [Suspect]
     Active Substance: FLUDROCORTISONE
     Route: 065
  3. FLUDARABINE [Concomitant]
     Active Substance: FLUDARABINE PHOSPHATE
     Dates: end: 200912
  4. RITUXAN [Suspect]
     Active Substance: RITUXIMAB
     Indication: CHRONIC LYMPHOCYTIC LEUKAEMIA
     Dosage: ONCE A WEEK FOR 3 WEEKS, ONE WEEK OFF
     Route: 042
     Dates: start: 20101229, end: 20110608

REACTIONS (10)
  - Clostridium difficile infection [Recovered/Resolved]
  - Pneumonia [Unknown]
  - Diarrhoea [Recovered/Resolved]
  - Blood creatinine increased [Recovered/Resolved]
  - Upper respiratory tract infection [Recovered/Resolved]
  - Transfusion [Unknown]
  - Hypokalaemia [Recovered/Resolved]
  - Chronic lymphocytic leukaemia [Recovered/Resolved]
  - Pancytopenia [Unknown]
  - Renal failure [Unknown]

NARRATIVE: CASE EVENT DATE: 20110904
